FAERS Safety Report 5391167-X (Version None)
Quarter: 2007Q3

REPORT INFORMATION
  Report Type: 
  Country: None (occurrence: None)
  Receive Date: 20070719
  Receipt Date: 20070711
  Transmission Date: 20080115
  Serious: Yes (Other)
  Sender: FDA-Public Use
  Company Number: PHRM2007FR01638

PATIENT
  Age: 65 Year
  Sex: Female

DRUGS (2)
  1. COTAREG [Suspect]
     Indication: HYPERTENSION
     Dosage: 1 DF, QD
     Route: 048
  2. PLAVIX [Suspect]

REACTIONS (4)
  - BONE MARROW FAILURE [None]
  - LEUKOPENIA [None]
  - PLATELET COUNT DECREASED [None]
  - RED BLOOD CELL COUNT DECREASED [None]
